FAERS Safety Report 5091056-4 (Version None)
Quarter: 2006Q3

REPORT INFORMATION
  Report Type: 
  Country: None (occurrence: None)
  Receive Date: 20060829
  Receipt Date: 20060526
  Transmission Date: 20061208
  Serious: Yes (Hospitalization, Other)
  Sender: FDA-Public Use
  Company Number: PHEH2006US06965

PATIENT
  Age: 63 Year
  Sex: Female
  Weight: 86.167 kg

DRUGS (19)
  1. TEGRETOL [Suspect]
     Indication: CONVULSION
     Dosage: 200 MG, BID
     Route: 048
     Dates: start: 20020103, end: 20060401
  2. TEGRETOL [Suspect]
     Dosage: 200MG QAM, 300MG QPM
     Dates: start: 20060401
  3. PROCRIT /00928302/ [Suspect]
     Indication: NEPHROGENIC ANAEMIA
     Route: 058
     Dates: start: 20060127, end: 20060127
  4. PROCRIT /00928302/ [Suspect]
     Route: 058
     Dates: start: 20060223, end: 20060223
  5. PROCRIT /00928302/ [Suspect]
     Route: 058
     Dates: start: 20060321, end: 20060321
  6. AVAPRO [Concomitant]
     Indication: HYPERTENSION
     Dosage: 75 MG, BID
     Route: 048
     Dates: start: 20030916
  7. AVANDIA [Concomitant]
     Indication: DIABETES MELLITUS
     Dosage: 8 MG, QD
     Route: 048
     Dates: start: 20050118
  8. PRAVACHOL [Concomitant]
     Indication: BLOOD CHOLESTEROL INCREASED
     Dosage: 40 MG, QD
     Dates: start: 20040507
  9. GLIPIZIDE [Concomitant]
     Indication: DIABETES MELLITUS
     Dosage: 10 MG, QD
     Route: 048
     Dates: start: 20050818
  10. METOPROLOL TARTRATE [Concomitant]
     Indication: HYPERTENSION
     Dosage: 25 MG, BID
     Route: 048
     Dates: start: 20040525
  11. COUMADIN [Concomitant]
     Indication: ANTICOAGULANT THERAPY
     Dosage: 5 MG, QD
     Route: 048
     Dates: start: 20020221
  12. LASIX [Concomitant]
     Indication: OEDEMA
     Dosage: 40 MG, BID
     Route: 048
     Dates: start: 20030808
  13. ASPIRIN [Concomitant]
     Indication: CORONARY ARTERY DISEASE
     Dosage: 81 MG, QD
     Dates: start: 20020301
  14. COLACE [Concomitant]
     Indication: CONSTIPATION
     Dosage: 100 MG, BID
     Route: 048
     Dates: start: 20030707
  15. OSCAL [Concomitant]
     Indication: MINERAL SUPPLEMENTATION
     Dosage: 500 MG, TID
     Route: 048
  16. PHOSLO [Concomitant]
     Indication: MINERAL SUPPLEMENTATION
     Dosage: 667 MG, TID
     Route: 048
     Dates: start: 20050909
  17. PRECOSE [Concomitant]
     Indication: DIABETES MELLITUS
     Dosage: 25 MG, TID
     Dates: start: 20060203
  18. LASIX [Concomitant]
     Dosage: 40 MG, TID
     Route: 048
     Dates: start: 20060404, end: 20060407
  19. LASIX [Concomitant]
     Dosage: 40 MG, BID
     Route: 048
     Dates: start: 20060407, end: 20060411

REACTIONS (13)
  - APRAXIA [None]
  - CAROTID ARTERY ATHEROMA [None]
  - CAROTID ARTERY STENOSIS [None]
  - CONVULSION [None]
  - ENCEPHALOMALACIA [None]
  - FACIAL PALSY [None]
  - GAIT SPASTIC [None]
  - HAEMOGLOBIN DECREASED [None]
  - HYPERREFLEXIA [None]
  - REFLEXES ABNORMAL [None]
  - SIMPLE PARTIAL SEIZURES [None]
  - UPPER MOTOR NEURONE LESION [None]
  - VENTRICULAR DYSFUNCTION [None]
